FAERS Safety Report 14046615 (Version 1)
Quarter: 2017Q4

REPORT INFORMATION
  Report Type: Spontaneous
  Country: US (occurrence: US)
  Receive Date: 20171005
  Receipt Date: 20171005
  Transmission Date: 20180321
  Serious: No
  Sender: FDA-Public Use
  Company Number: US-EISAI MEDICAL RESEARCH-EC-2017-031720

PATIENT
  Age: 5 Year
  Sex: Male

DRUGS (5)
  1. BANZEL [Suspect]
     Active Substance: RUFINAMIDE
     Route: 048
     Dates: start: 20170928
  2. BANZEL [Suspect]
     Active Substance: RUFINAMIDE
     Indication: SEIZURE
     Route: 048
     Dates: start: 20170918, end: 20170921
  3. KEPPRA [Concomitant]
     Active Substance: LEVETIRACETAM
     Indication: SEIZURE
     Route: 048
  4. BANZEL [Suspect]
     Active Substance: RUFINAMIDE
     Route: 048
     Dates: start: 20170926, end: 20170927
  5. BANZEL [Suspect]
     Active Substance: RUFINAMIDE
     Route: 048
     Dates: start: 20170922, end: 20170925

REACTIONS (3)
  - Drug ineffective [Unknown]
  - Lethargy [Unknown]
  - Gait disturbance [Unknown]

NARRATIVE: CASE EVENT DATE: 20170918
